FAERS Safety Report 25357725 (Version 1)
Quarter: 2025Q2

REPORT INFORMATION
  Report Type: Spontaneous
  Country: GB (occurrence: GB)
  Receive Date: 20250526
  Receipt Date: 20250526
  Transmission Date: 20250717
  Serious: Yes (Other)
  Sender: PIRAMAL
  Company Number: GB-PCCINC-2025-PPL-000305

PATIENT

DRUGS (5)
  1. ISOFLURANE [Suspect]
     Active Substance: ISOFLURANE
     Indication: Product used for unknown indication
  2. GLYCERIN [Concomitant]
     Active Substance: GLYCERIN
     Indication: Product used for unknown indication
  3. DOXAZOSIN [Concomitant]
     Active Substance: DOXAZOSIN MESYLATE
     Indication: Product used for unknown indication
  4. AMLODIPINE [Concomitant]
     Active Substance: AMLODIPINE BESYLATE
     Indication: Product used for unknown indication
  5. ENOXAPARIN [Concomitant]
     Active Substance: ENOXAPARIN
     Indication: Product used for unknown indication

REACTIONS (1)
  - Blood creatine phosphokinase increased [Recovered/Resolved]
